FAERS Safety Report 10878844 (Version 1)
Quarter: 2015Q1

REPORT INFORMATION
  Report Type: Spontaneous
  Country: CA (occurrence: None)
  Receive Date: 20150224
  Receipt Date: 20150224
  Transmission Date: 20150721
  Serious: Yes (Other)
  Sender: FDA-Public Use
  Company Number: None

PATIENT
  Age: 60 Year
  Sex: Male
  Weight: 75 kg

DRUGS (3)
  1. LURASIDONE [Suspect]
     Active Substance: LURASIDONE
     Indication: MAJOR DEPRESSION
     Route: 048
     Dates: start: 20140828
  2. XANAX [Concomitant]
     Active Substance: ALPRAZOLAM
  3. LURASIDONE [Suspect]
     Active Substance: LURASIDONE
     Indication: GENERALISED ANXIETY DISORDER
     Route: 048
     Dates: start: 20140828

REACTIONS (2)
  - Memory impairment [None]
  - Unevaluable event [None]

NARRATIVE: CASE EVENT DATE: 20141030
